FAERS Safety Report 19228627 (Version 1)
Quarter: 2021Q2

REPORT INFORMATION
  Report Type: Spontaneous
  Country: CN (occurrence: CN)
  Receive Date: 20210507
  Receipt Date: 20210507
  Transmission Date: 20210717
  Serious: Yes (Other)
  Sender: FDA-Public Use
  Company Number: CN-ROCHE-2821329

PATIENT
  Age: 64 Year
  Sex: Female

DRUGS (27)
  1. VINCRISTINE [Concomitant]
     Active Substance: VINCRISTINE
     Indication: FOLLICULAR LYMPHOMA
     Dosage: R?CHOP FOR 4 CYCLES
  2. MABTHERA [Suspect]
     Active Substance: RITUXIMAB
     Dosage: ON 16 JAN 2020 AND 25 FEB 2020, RITUXIMAB+ HIGH?DOSE METHOTREXATE + IBRUTINIB FOR?2 CYCLES
     Route: 065
  3. AVASTIN [Suspect]
     Active Substance: BEVACIZUMAB
     Indication: COLON CANCER
     Dosage: BEVACIZUMAB + 5?FLUOROURACIL FOR 1 CYCLE
     Route: 065
     Dates: start: 20210205
  4. PREDNISONE. [Concomitant]
     Active Substance: PREDNISONE
     Indication: FOLLICULAR LYMPHOMA
     Dosage: R?CHOP FOR 4 CYCLES
  5. TEMOZOLOMIDE. [Concomitant]
     Active Substance: TEMOZOLOMIDE
     Dosage: ON 09 NOV 2019 AND 21 DEC 2019, RITUXIMAB+ HIGH?DOSE METHOTREXATE +?TEMOZOLOMIDE + IBRUTINIB FOR 2 C
  6. OXALIPLATIN. [Concomitant]
     Active Substance: OXALIPLATIN
     Indication: COLON CANCER
     Dosage: MFOLFOX4 FOR 4 CYCLES
  7. MABTHERA [Suspect]
     Active Substance: RITUXIMAB
     Indication: FOLLICULAR LYMPHOMA
     Dosage: RITUXIMAB+ HIGH?DOSE METHOTREXATE (3.5 G/M2) + TEMOZOLOMIDE FOR 1 CYCLE
     Route: 065
     Dates: start: 20191014
  8. CISPLATIN. [Concomitant]
     Active Substance: CISPLATIN
     Indication: FOLLICULAR LYMPHOMA
     Dosage: R?DHAP FOR 2 CYCLES
  9. METHOTREXATE. [Concomitant]
     Active Substance: METHOTREXATE
     Dosage: ON 09 NOV 2019 AND 21 DEC 2019, RITUXIMAB+ HIGH?DOSE METHOTREXATE +?TEMOZOLOMIDE + IBRUTINIB FOR 2 C
  10. TEMOZOLOMIDE. [Concomitant]
     Active Substance: TEMOZOLOMIDE
     Indication: FOLLICULAR LYMPHOMA
     Dosage: RITUXIMAB+ HIGH?DOSE METHOTREXATE (3.5 G/M2) + TEMOZOLOMIDE FOR 1 CYCLE
     Dates: start: 20191014
  11. MABTHERA [Suspect]
     Active Substance: RITUXIMAB
     Dosage: ON 24 FEB 2021 AND 24 MAR 2021, BR FOR 2 CYCLES
     Route: 065
  12. MABTHERA [Suspect]
     Active Substance: RITUXIMAB
     Dosage: R?CHOP FOR 4 CYCLES
     Route: 065
  13. MABTHERA [Suspect]
     Active Substance: RITUXIMAB
     Dosage: ON 09 NOV 2019 AND 21 DEC 2019, RITUXIMAB+ HIGH?DOSE METHOTREXATE + TEMOZOLOMIDE + IBRUTINIB FOR 2 C
     Route: 065
  14. 5?FLUOROURACIL [Concomitant]
     Active Substance: FLUOROURACIL
     Dosage: BEVACIZUMAB + 5?FLUOROURACIL FOR 1 CYCLE
     Dates: start: 20210205
  15. BENDAMUSTINE [Concomitant]
     Active Substance: BENDAMUSTINE
     Indication: FOLLICULAR LYMPHOMA
     Dosage: ON 24 FEB 2021 AND 24 MAR 2021, BR FOR 2 CYCLES
  16. METHOTREXATE. [Concomitant]
     Active Substance: METHOTREXATE
     Indication: FOLLICULAR LYMPHOMA
     Dosage: 3.5 G/M2, RITUXIMAB+ HIGH?DOSE METHOTREXATE (3.5 G/M2) + TEMOZOLOMIDE FOR 1 CYCLE
     Dates: start: 20191014
  17. IBRUTINIB [Concomitant]
     Active Substance: IBRUTINIB
     Dosage: ON 16 JAN 2020 AND 25 FEB 2020, RITUXIMAB+ HIGH?DOSE METHOTREXATE + IBRUTINIB FOR?2 CYCLES
     Route: 048
  18. CYTARABINE. [Concomitant]
     Active Substance: CYTARABINE
     Indication: FOLLICULAR LYMPHOMA
     Dosage: R?DHAP FOR 2 CYCLES
  19. LENALIDOMIDE [Concomitant]
     Active Substance: LENALIDOMIDE
     Indication: FOLLICULAR LYMPHOMA
     Route: 048
  20. CALCIUM FOLINATE [Concomitant]
     Active Substance: LEUCOVORIN CALCIUM
     Indication: COLON CANCER
     Dosage: MFOLFOX4 FOR 4 CYCLES
  21. MABTHERA [Suspect]
     Active Substance: RITUXIMAB
     Dosage: R?DHAP FOR 2 CYCLES
     Route: 065
  22. DOXORUBICIN [Concomitant]
     Active Substance: DOXORUBICIN
     Indication: FOLLICULAR LYMPHOMA
     Dosage: R?CHOP FOR 4 CYCLES
  23. DEXAMETHASONE. [Concomitant]
     Active Substance: DEXAMETHASONE
     Indication: FOLLICULAR LYMPHOMA
     Dosage: R?DHAP FOR 2 CYCLES
  24. METHOTREXATE. [Concomitant]
     Active Substance: METHOTREXATE
     Dosage: ON 16 JAN 2020 AND 25 FEB 2020, RITUXIMAB+ HIGH?DOSE METHOTREXATE + IBRUTINIB FOR?2 CYCLES
  25. IBRUTINIB [Concomitant]
     Active Substance: IBRUTINIB
     Indication: FOLLICULAR LYMPHOMA
     Dosage: ON 09 NOV 2019 AND 21 DEC 2019, RITUXIMAB+ HIGH?DOSE METHOTREXATE +?TEMOZOLOMIDE + IBRUTINIB FOR 2 C
  26. 5?FLUOROURACIL [Concomitant]
     Active Substance: FLUOROURACIL
     Indication: COLON CANCER
     Dosage: MFOLFOX4 FOR 4 CYCLES
  27. CYCLOPHOSPHAMIDE. [Concomitant]
     Active Substance: CYCLOPHOSPHAMIDE
     Indication: FOLLICULAR LYMPHOMA
     Dosage: R?CHOP FOR 4 CYCLES

REACTIONS (3)
  - Swelling of eyelid [Recovered/Resolved]
  - Neuropathy peripheral [Unknown]
  - Myelosuppression [Unknown]
